FAERS Safety Report 14291293 (Version 1)
Quarter: 2017Q4

REPORT INFORMATION
  Report Type: Spontaneous
  Country: GB (occurrence: GB)
  Receive Date: 20171215
  Receipt Date: 20171215
  Transmission Date: 20180321
  Serious: Yes (Disabling)
  Sender: FDA-Public Use
  Company Number: GB-TEVA-2017-GB-833215

PATIENT
  Age: 61 Year
  Sex: Female
  Weight: 79 kg

DRUGS (8)
  1. ESTRADIOL. [Concomitant]
     Active Substance: ESTRADIOL
     Dosage: INSERT ONE DAILY FOR TWO WEEKS THEN REDUCE TO ONE TWICE A WEEK.
     Dates: start: 20170912
  2. GABAPENTIN. [Concomitant]
     Active Substance: GABAPENTIN
     Dates: start: 20170210
  3. COCODAMOL [Suspect]
     Active Substance: ACETAMINOPHEN\CODEINE PHOSPHATE
  4. PARACETAMOL [Concomitant]
     Active Substance: ACETAMINOPHEN
     Dosage: TAKE 1 OR 2 FOUR TIMES A DAY.
     Dates: start: 20170210
  5. CLARITHROMYCIN. [Concomitant]
     Active Substance: CLARITHROMYCIN
     Dates: start: 20170919, end: 20170926
  6. AMLODIPINE [Concomitant]
     Active Substance: AMLODIPINE BESYLATE
     Dates: start: 20170210
  7. TRAMADOL. [Concomitant]
     Active Substance: TRAMADOL
     Dosage: TAKE 1 OR 2 TO BE TAKEN NOT MORE OFTEN THAN EVE...
     Dates: start: 20170210
  8. ATORVASTATIN [Concomitant]
     Active Substance: ATORVASTATIN
     Indication: HYPERCHOLESTEROLAEMIA
     Dates: start: 20170210

REACTIONS (2)
  - Drug intolerance [Unknown]
  - Headache [Recovered/Resolved]

NARRATIVE: CASE EVENT DATE: 201604
